FAERS Safety Report 16766167 (Version 2)
Quarter: 2019Q3

REPORT INFORMATION
  Report Type: Spontaneous
  Country: US (occurrence: US)
  Receive Date: 20190903
  Receipt Date: 20190909
  Transmission Date: 20191005
  Serious: Yes (Other)
  Sender: FDA-Public Use
  Company Number: US-ROCHE-2400270

PATIENT
  Age: 79 Year
  Sex: Male

DRUGS (1)
  1. ACTEMRA [Suspect]
     Active Substance: TOCILIZUMAB
     Indication: RHEUMATOID ARTHRITIS
     Dosage: (STRENGTH : 80 MG/4ML)
     Route: 042
     Dates: start: 20190708, end: 20190801

REACTIONS (1)
  - Shock [Unknown]

NARRATIVE: CASE EVENT DATE: 20190801
